FAERS Safety Report 9495295 (Version 2)
Quarter: 2013Q3

REPORT INFORMATION
  Report Type: Spontaneous
  Country: US (occurrence: US)
  Receive Date: 20130903
  Receipt Date: 20130916
  Transmission Date: 20140515
  Serious: Yes (Hospitalization)
  Sender: FDA-Public Use
  Company Number: US-GILEAD-2013-0082467

PATIENT
  Sex: Male

DRUGS (4)
  1. LETAIRIS [Suspect]
     Indication: SLEEP APNOEA SYNDROME
     Dosage: 10 MG, QD
     Dates: start: 20120715
  2. LETAIRIS [Suspect]
     Indication: PULMONARY HYPERTENSION
  3. TYVASO [Concomitant]
  4. WARFARIN [Concomitant]

REACTIONS (1)
  - Sleep apnoea syndrome [Unknown]
